FAERS Safety Report 6531135-5 (Version None)
Quarter: 2010Q1

REPORT INFORMATION
  Report Type: 
  Country: None (occurrence: None)
  Receive Date: 20100108
  Receipt Date: 20100104
  Transmission Date: 20100710
  Serious: Yes (Death, Hospitalization)
  Sender: FDA-Public Use
  Company Number: FR-ASTRAZENECA-2010SE00099

PATIENT
  Age: 939 Month
  Sex: Female

DRUGS (10)
  1. TAMOXIFEN CITRATE [Suspect]
     Indication: BREAST CANCER
     Route: 048
     Dates: start: 20080718, end: 20081201
  2. VALSARTAN AND HYDROCHLOROTHIAZIDE [Concomitant]
  3. TAHOR [Concomitant]
  4. DAFALGAN [Concomitant]
  5. ACTIQ [Concomitant]
  6. LASILIX [Concomitant]
  7. PIASCLEDINE [Concomitant]
  8. DUPHALAC [Concomitant]
  9. GINKOR FORT [Concomitant]
  10. IMOVANE [Concomitant]

REACTIONS (7)
  - ARTERIAL DISORDER [None]
  - DEEP VEIN THROMBOSIS [None]
  - GENERAL PHYSICAL HEALTH DETERIORATION [None]
  - PAIN [None]
  - SKIN EXFOLIATION [None]
  - SKIN ULCER [None]
  - URINARY TRACT INFECTION [None]
